FAERS Safety Report 8582133-1 (Version None)
Quarter: 2012Q3

REPORT INFORMATION
  Report Type: 
  Country: None (occurrence: None)
  Receive Date: 20120809
  Receipt Date: 20120806
  Transmission Date: 20120928
  Serious: Yes (Death)
  Sender: FDA-Public Use
  Company Number: BR-PFIZER INC-2012191677

PATIENT
  Age: 82 Year
  Sex: Female

DRUGS (4)
  1. PONDERA [Concomitant]
  2. SUTENT [Suspect]
     Indication: RENAL CANCER
     Dosage: UNK
     Route: 048
     Dates: start: 20120305
  3. CLONAZEPAM [Concomitant]
  4. ASPIRIN [Concomitant]

REACTIONS (1)
  - DEATH [None]
